FAERS Safety Report 8914190 (Version 2)
Quarter: 2012Q4

REPORT INFORMATION
  Report Type: 
  Country: US (occurrence: US)
  Receive Date: 20121119
  Receipt Date: 20121123
  Transmission Date: 20130627
  Serious: Yes (Other)
  Sender: FDA-Public Use
  Company Number: US-JNJFOC-9835465

PATIENT
  Age: 30 Month
  Sex: Male
  Weight: 18.14 kg

DRUGS (3)
  1. ZYRTEC [Suspect]
     Indication: ECZEMA
     Dosage: Frequency Text: DAILY Daily Dose Qty: 5 mg
     Route: 048
     Dates: start: 19980401
  2. ZYRTEC [Suspect]
     Indication: SINUSITIS
     Dosage: Frequency Text: DAILY Daily Dose Qty: 5 mg
     Route: 048
     Dates: start: 19980401
  3. MULTIVITAMINS [Concomitant]
     Route: 048

REACTIONS (1)
  - Oculogyric crisis [Not Recovered/Not Resolved]
